FAERS Safety Report 6383729-8 (Version None)
Quarter: 2009Q3

REPORT INFORMATION
  Report Type: 
  Country: None (occurrence: None)
  Receive Date: 20090929
  Receipt Date: 20090929
  Transmission Date: 20100115
  Serious: No
  Sender: FDA-Public Use
  Company Number: None

PATIENT
  Age: 54 Year
  Sex: Female
  Weight: 73.4827 kg

DRUGS (2)
  1. LEVAQUIN [Suspect]
     Indication: COUGH
     Dosage: 1 TABLET PER DAY FO 10 DAYS 1 X PER DAY PO (HAVE NOT TAKEN YET)
     Route: 048
  2. LEVAQUIN [Suspect]
     Indication: UPPER RESPIRATORY TRACT INFECTION
     Dosage: 1 TABLET PER DAY FOR 10 DAYS 1 X PER DAY PO
     Route: 048
     Dates: start: 20090309, end: 20090319

REACTIONS (7)
  - CONTUSION [None]
  - JOINT SWELLING [None]
  - MIGRAINE [None]
  - PAIN IN JAW [None]
  - TEMPORAL ARTERITIS [None]
  - TENDON DISORDER [None]
  - TENDONITIS [None]
